FAERS Safety Report 14195543 (Version 2)
Quarter: 2018Q1

REPORT INFORMATION
  Report Type: Spontaneous
  Country: AU (occurrence: AU)
  Receive Date: 20171116
  Receipt Date: 20180119
  Transmission Date: 20180508
  Serious: Yes (Other)
  Sender: FDA-Public Use
  Company Number: AU-PFIZER INC-2017488511

PATIENT
  Age: 21 Year
  Sex: Female

DRUGS (3)
  1. NEUROTIN /01003001/ [Concomitant]
  2. LYRICA [Suspect]
     Active Substance: PREGABALIN
     Dosage: 300 MG, UNK
     Dates: start: 20171101, end: 20171101
  3. LYRICA [Suspect]
     Active Substance: PREGABALIN
     Dosage: 25 UNK, UNK
     Dates: start: 201710, end: 201710

REACTIONS (6)
  - Paralysis [Recovered/Resolved]
  - Sensory loss [Recovered/Resolved]
  - Drug dispensing error [Unknown]
  - Wrong drug administered [Unknown]
  - Muscle spasms [Unknown]
  - Hallucination [Recovered/Resolved]

NARRATIVE: CASE EVENT DATE: 20171101
